FAERS Safety Report 6036054-9 (Version None)
Quarter: 2009Q1

REPORT INFORMATION
  Report Type: 
  Country: None (occurrence: None)
  Receive Date: 20090113
  Receipt Date: 20090108
  Transmission Date: 20090719
  Serious: Yes (Other)
  Sender: FDA-Public Use
  Company Number: US-ABBOTT-09P-163-0496527-00

PATIENT
  Sex: Female
  Weight: 77.18 kg

DRUGS (11)
  1. HUMIRA [Suspect]
     Indication: CROHN'S DISEASE
     Dates: start: 20080801
  2. HUMIRA [Suspect]
     Dates: start: 20090102
  3. NADOLOL [Concomitant]
     Indication: DRUG USE FOR UNKNOWN INDICATION
  4. VESICARE [Concomitant]
     Indication: DRUG USE FOR UNKNOWN INDICATION
  5. FOSAMAX [Concomitant]
     Indication: DRUG USE FOR UNKNOWN INDICATION
  6. ZANTAC [Concomitant]
     Indication: DRUG USE FOR UNKNOWN INDICATION
  7. BUTALBITAL/APAP/CAFFINE [Concomitant]
     Indication: PAIN
     Dosage: PRN
  8. HYDROXYZINE HCL [Concomitant]
     Indication: DRUG USE FOR UNKNOWN INDICATION
  9. LORATADINE [Concomitant]
     Indication: DRUG USE FOR UNKNOWN INDICATION
  10. GLUCOSAMINE + CHONDROITIN [Concomitant]
     Indication: DRUG USE FOR UNKNOWN INDICATION
  11. CITRACAL [Concomitant]
     Indication: DRUG USE FOR UNKNOWN INDICATION

REACTIONS (2)
  - RASH [None]
  - TRIGGER FINGER [None]
